FAERS Safety Report 6782842-0 (Version None)
Quarter: 2010Q2

REPORT INFORMATION
  Report Type: 
  Country: None (occurrence: None)
  Receive Date: 20100617
  Receipt Date: 20100603
  Transmission Date: 20101027
  Serious: Yes (Death, Hospitalization, Other)
  Sender: FDA-Public Use
  Company Number: 2010US001915

PATIENT
  Age: 34 Year
  Sex: Male

DRUGS (13)
  1. PROGRAF [Suspect]
     Indication: RENAL TRANSPLANT
     Dosage: 1 MG, BID, ORAL; 2 MG, BID, ORAL
     Route: 048
     Dates: end: 20091201
  2. PROGRAF [Suspect]
     Indication: RENAL TRANSPLANT
     Dosage: 1 MG, BID, ORAL; 2 MG, BID, ORAL
     Route: 048
     Dates: start: 20091201
  3. CELLCEPT [Concomitant]
  4. HYDRALAZINE (HYDRALAZINE) FORMULATION UNKNOWN [Concomitant]
  5. PREDNISONE (PREDNISONE) FORMULATION UNKNOWN [Concomitant]
  6. CLONAZEPAM [Concomitant]
  7. LASIX [Concomitant]
  8. NEURONTIN (GABAPENTIN) FORMULATION UNKNOWN [Concomitant]
  9. LOPRESSOR (METOPROLOL TARTRATE) FORMULATION UNKNOWN [Concomitant]
  10. FLOVENT (FLUTICASONE PROPIONATE) INHALATION [Concomitant]
  11. MORPHINE (MORPHINE) FORMULATION UNKNOWN [Concomitant]
  12. RENAGEL (SEVELAMER) FORMULATION UNKNOWN [Concomitant]
  13. FIORICET (BUTALBITAL, CAFFEINE, PARACETAMOL) TABLET [Concomitant]

REACTIONS (16)
  - CARDIAC FAILURE CONGESTIVE [None]
  - CHRONIC ALLOGRAFT NEPHROPATHY [None]
  - DYSPHAGIA [None]
  - DYSPNOEA [None]
  - HAEMOPTYSIS [None]
  - HYPERKALAEMIA [None]
  - MITRAL VALVE STENOSIS [None]
  - NAUSEA [None]
  - NIGHT SWEATS [None]
  - OESOPHAGITIS [None]
  - PNEUMONIA [None]
  - RENAL CELL CARCINOMA [None]
  - RENAL FAILURE CHRONIC [None]
  - SUBDURAL HAEMATOMA [None]
  - SYSTEMIC LUPUS ERYTHEMATOSUS [None]
  - WEIGHT DECREASED [None]
